FAERS Safety Report 4488635-1 (Version None)
Quarter: 2004Q4

REPORT INFORMATION
  Report Type: 
  Country: None (occurrence: None)
  Receive Date: 20041025
  Receipt Date: 20041013
  Transmission Date: 20050328
  Serious: Yes (Other)
  Sender: FDA-Public Use
  Company Number: 2004238879DE

PATIENT
  Age: 35 Year
  Sex: Female

DRUGS (1)
  1. DEPO-CLINOVIR (MEDROXYPROGESTERONE ACETATE) SUSPENSION, STERILE, 150MG [Suspect]
     Indication: CONTRACEPTION
     Dosage: MOST RECENT INJECTION, INTRAMUSCULAR
     Route: 030
     Dates: start: 20040101, end: 20040101

REACTIONS (1)
  - MALIGNANT MELANOMA [None]
